FAERS Safety Report 9258918 (Version 1)
Quarter: 2013Q2

REPORT INFORMATION
  Report Type: Spontaneous
  Country: JP (occurrence: JP)
  Receive Date: 20130426
  Receipt Date: 20130426
  Transmission Date: 20140414
  Serious: Yes (Hospitalization)
  Sender: FDA-Public Use
  Company Number: JP-009507513-1304JPN015244

PATIENT
  Age: 80 Year
  Sex: Female

DRUGS (3)
  1. JANUVIA TABLETS 25MG [Suspect]
     Dosage: DAILY DOSAGE UNKNOWN
     Route: 048
  2. PREDNISOLONE [Suspect]
     Dosage: DAILY DOSAGE UNKNOWN
     Route: 065
  3. FOSAMAC TABLETS 35MG [Concomitant]
     Dosage: DAILY DOSAGE UNKNOWN
     Route: 048

REACTIONS (1)
  - Pneumatosis intestinalis [Unknown]
